FAERS Safety Report 15493705 (Version 1)
Quarter: 2018Q4

REPORT INFORMATION
  Report Type: Report from Study
  Country: TR (occurrence: TR)
  Receive Date: 20181012
  Receipt Date: 20181012
  Transmission Date: 20190205
  Serious: Yes (Hospitalization)
  Sender: FDA-Public Use
  Company Number: TR-MYLANLABS-2018M1075048

PATIENT
  Sex: Male

DRUGS (1)
  1. TRIAMCINOLONE [Suspect]
     Active Substance: TRIAMCINOLONE
     Indication: MACULAR OEDEMA
     Dosage: 2 POSTERIOR SUB-TENON INJECTIONS IN RIGHT AND LEFT EYE EACH
     Route: 031

REACTIONS (1)
  - Intraocular pressure increased [Recovered/Resolved]
